FAERS Safety Report 8271195 (Version 24)
Quarter: 2013Q2

REPORT INFORMATION
  Report Type: Report from Study
  Country: CA (occurrence: CA)
  Receive Date: 20111201
  Receipt Date: 20130517
  Transmission Date: 20140414
  Serious: Yes (Death, Hospitalization, Other)
  Sender: FDA-Public Use
  Company Number: PHHY2011CA87419

PATIENT
  Age: 77 Year
  Sex: Female

DRUGS (3)
  1. SANDOSTATIN LAR [Suspect]
     Indication: NEUROENDOCRINE TUMOUR
     Dosage: 30 MG, EVERY 4 WEEKS
     Route: 030
     Dates: start: 20110829
  2. AMIODARONE [Interacting]
     Dosage: UNK UKN, UNK
  3. SPIRONOLACTONE [Concomitant]

REACTIONS (15)
  - Death [Fatal]
  - Urinary tract infection [Unknown]
  - Device related infection [Unknown]
  - Syncope [Unknown]
  - Bradycardia [Unknown]
  - Pneumonia [Unknown]
  - Cholelithiasis [Unknown]
  - Terminal state [Unknown]
  - Loss of consciousness [Unknown]
  - Blood pressure increased [Unknown]
  - Drug interaction [Unknown]
  - Weight increased [Unknown]
  - Asthenia [Unknown]
  - Mobility decreased [Unknown]
  - Fatigue [Unknown]
